FAERS Safety Report 6240856-3 (Version None)
Quarter: 2009Q2

REPORT INFORMATION
  Report Type: 
  Country: None (occurrence: None)
  Receive Date: 20090619
  Receipt Date: 20090608
  Transmission Date: 20091009
  Serious: Yes (Hospitalization)
  Sender: FDA-Public Use
  Company Number: 236450K09USA

PATIENT
  Age: 25 Year
  Sex: Female

DRUGS (1)
  1. REBIF [Suspect]
     Indication: MULTIPLE SCLEROSIS
     Dosage: 44 MCG (44 MCG,3 IN 1 WK), SUBCUTANEOUS
     Route: 058
     Dates: start: 20090519

REACTIONS (1)
  - MULTIPLE SCLEROSIS RELAPSE [None]
